FAERS Safety Report 6998305-3 (Version None)
Quarter: 2010Q3

REPORT INFORMATION
  Report Type: 
  Country: None (occurrence: None)
  Receive Date: 20100920
  Receipt Date: 20100323
  Transmission Date: 20110219
  Serious: Yes (Other)
  Sender: FDA-Public Use
  Company Number: US-ASTRAZENECA-2010SE13092

PATIENT
  Age: 51 Year
  Sex: Female

DRUGS (9)
  1. SEROQUEL [Suspect]
     Indication: DEPRESSION
     Route: 048
     Dates: start: 20000101
  2. SEROQUEL [Suspect]
     Indication: ANXIETY
     Route: 048
     Dates: start: 20000101
  3. SEROQUEL [Suspect]
     Route: 048
     Dates: start: 20000101
  4. SEROQUEL [Suspect]
     Route: 048
     Dates: start: 20000101
  5. SEROQUEL [Suspect]
     Route: 048
  6. SEROQUEL [Suspect]
     Route: 048
  7. SEROQUEL [Suspect]
     Route: 048
  8. SEROQUEL [Suspect]
     Route: 048
  9. LOT OF OTHER MEDICATION [Concomitant]

REACTIONS (8)
  - ARTHRALGIA [None]
  - DYSKINESIA [None]
  - FATIGUE [None]
  - HYPOAESTHESIA [None]
  - PANIC ATTACK [None]
  - PARAESTHESIA [None]
  - SPEECH DISORDER [None]
  - SUICIDAL IDEATION [None]
